FAERS Safety Report 16794706 (Version 5)
Quarter: 2020Q1

REPORT INFORMATION
  Report Type: Spontaneous
  Country: US (occurrence: US)
  Receive Date: 20190911
  Receipt Date: 20200218
  Transmission Date: 20200409
  Serious: No
  Sender: FDA-Public Use
  Company Number: US-PFIZER INC-2019387639

PATIENT
  Age: 66 Year
  Sex: Female
  Weight: 83.97 kg

DRUGS (2)
  1. XELJANZ XR [Suspect]
     Active Substance: TOFACITINIB CITRATE
     Dosage: 11 MG, 1X/DAY
     Route: 048
     Dates: start: 201906, end: 201910
  2. XELJANZ XR [Suspect]
     Active Substance: TOFACITINIB CITRATE
     Indication: PSORIATIC ARTHROPATHY
     Dosage: 11 MG, UNK
     Dates: start: 20190501, end: 20191201

REACTIONS (36)
  - Gingival abscess [Recovering/Resolving]
  - Abdominal pain upper [Recovered/Resolved]
  - Feeling abnormal [Unknown]
  - Liver disorder [Unknown]
  - Upper respiratory tract congestion [Unknown]
  - Blood immunoglobulin G decreased [Unknown]
  - Chest discomfort [Unknown]
  - Liver function test abnormal [Unknown]
  - Blood cholesterol increased [Unknown]
  - Product use issue [Unknown]
  - Blood triglycerides increased [Unknown]
  - Ear pain [Unknown]
  - Immune system disorder [Unknown]
  - Liver function test increased [Unknown]
  - Bronchitis [Unknown]
  - Oropharyngeal pain [Unknown]
  - Oral candidiasis [Unknown]
  - Oral pain [Unknown]
  - Abdominal distension [Recovered/Resolved]
  - Sinus congestion [Unknown]
  - Intentional dose omission [Unknown]
  - White blood cell count increased [Unknown]
  - Chest pain [Unknown]
  - Productive cough [Unknown]
  - Condition aggravated [Unknown]
  - Tooth loss [Unknown]
  - Abdominal distension [Unknown]
  - Pruritus [Unknown]
  - Weight increased [Recovered/Resolved]
  - Hypersensitivity [Unknown]
  - High density lipoprotein decreased [Unknown]
  - Glucose tolerance impaired [Unknown]
  - Upper respiratory tract infection [Unknown]
  - Abdominal distension [Recovered/Resolved]
  - Ear pruritus [Unknown]
  - Haemoglobin decreased [Unknown]

NARRATIVE: CASE EVENT DATE: 2019
